FAERS Safety Report 8458908-6 (Version None)
Quarter: 2012Q2

REPORT INFORMATION
  Report Type: 
  Country: None (occurrence: None)
  Receive Date: 20120622
  Receipt Date: 20120618
  Transmission Date: 20120825
  Serious: Yes (Hospitalization)
  Sender: FDA-Public Use
  Company Number: FR-ROCHE-1047095

PATIENT
  Sex: Male
  Weight: 65 kg

DRUGS (5)
  1. CYTARABINE [Suspect]
     Indication: MANTLE CELL LYMPHOMA
     Dosage: POWDER AND SOLVENT FOR SOLUTION FOR INFUSION. ACCORDING TO THE PROTOCOLE ON DAYS 1-2/CYCLE, SO PROBA
     Dates: start: 20120201, end: 20120201
  2. MABTHERA [Suspect]
     Indication: MANTLE CELL LYMPHOMA
     Route: 041
     Dates: start: 20120203, end: 20120203
  3. DEXAMETHASONE [Suspect]
     Indication: MANTLE CELL LYMPHOMA
     Dates: start: 20120131, end: 20120203
  4. NEULASTA [Suspect]
     Indication: MANTLE CELL LYMPHOMA
     Route: 058
     Dates: start: 20120206, end: 20120206
  5. CISPLATIN [Suspect]
     Indication: MANTLE CELL LYMPHOMA
     Dates: start: 20120131, end: 20120131

REACTIONS (1)
  - LEUKOCYTOCLASTIC VASCULITIS [None]
